FAERS Safety Report 7178455-1 (Version None)
Quarter: 2010Q4

REPORT INFORMATION
  Report Type: 
  Country: None (occurrence: None)
  Receive Date: 20101220
  Receipt Date: 20101216
  Transmission Date: 20110411
  Serious: Yes (Other)
  Sender: FDA-Public Use
  Company Number: FR-ABBOTT-10P-056-0690309-00

PATIENT
  Sex: Female

DRUGS (7)
  1. ZECLAR [Suspect]
     Indication: INFECTIVE TENOSYNOVITIS
     Route: 048
     Dates: start: 20101103, end: 20101126
  2. ZECLAR [Suspect]
     Indication: MYCOBACTERIAL INFECTION
  3. BACTRIM [Suspect]
     Indication: INFECTIVE TENOSYNOVITIS
     Route: 048
     Dates: start: 20101103, end: 20101126
  4. BACTRIM [Suspect]
     Indication: MYCOBACTERIAL INFECTION
  5. MYAMBUTOL [Suspect]
     Indication: INFECTIVE TENOSYNOVITIS
     Route: 048
     Dates: start: 20101103, end: 20101126
  6. MYAMBUTOL [Suspect]
     Indication: MYCOBACTERIAL INFECTION
  7. CRESTOR [Suspect]
     Indication: HYPERCHOLESTEROLAEMIA
     Route: 048
     Dates: start: 20101028, end: 20101126

REACTIONS (3)
  - CHOLESTASIS [None]
  - CYTOLYTIC HEPATITIS [None]
  - HEPATIC ENZYME INCREASED [None]
